FAERS Safety Report 18377578 (Version 3)
Quarter: 2020Q4

REPORT INFORMATION
  Report Type: Report from Study
  Country: NL (occurrence: NL)
  Receive Date: 20201013
  Receipt Date: 20201027
  Transmission Date: 20210114
  Serious: Yes (Death, Hospitalization, Disabling)
  Sender: FDA-Public Use
  Company Number: NL-PFIZER INC-2020380598

PATIENT
  Age: 57 Year
  Sex: Male
  Weight: 94 kg

DRUGS (2)
  1. SUNITINIB MALATE. [Suspect]
     Active Substance: SUNITINIB MALATE
     Indication: COLORECTAL CANCER METASTATIC
     Dosage: 700 MG, ONCE EVERY 2 WEEKS
     Dates: start: 20200721
  2. DEXAMETHASON [DEXAMETHASONE] [Concomitant]
     Active Substance: DEXAMETHASONE
     Indication: CANCER PAIN
     Dosage: UNK
     Route: 048
     Dates: start: 20200915, end: 20201001

REACTIONS (8)
  - Malaise [Not Recovered/Not Resolved]
  - Hypoalbuminaemia [Not Recovered/Not Resolved]
  - Agitation [Not Recovered/Not Resolved]
  - Pain in extremity [Not Recovered/Not Resolved]
  - Depressed level of consciousness [Not Recovered/Not Resolved]
  - Skin disorder [Not Recovered/Not Resolved]
  - Hepatic failure [Fatal]
  - Oedema peripheral [Not Recovered/Not Resolved]

NARRATIVE: CASE EVENT DATE: 20200925
